FAERS Safety Report 9556795 (Version 1)
Quarter: 2013Q3

REPORT INFORMATION
  Report Type: Spontaneous
  Country: US (occurrence: None)
  Receive Date: 20130724
  Receipt Date: 20130724
  Transmission Date: 20140515
  Serious: Yes (Other)
  Sender: FDA-Public Use
  Company Number: PHEH2013US007716

PATIENT
  Age: 31 Year
  Sex: Male

DRUGS (2)
  1. GILENYA [Suspect]
     Route: 048
  2. PRILOSEC [Concomitant]

REACTIONS (4)
  - Memory impairment [None]
  - Dyskinesia [None]
  - Hypoaesthesia [None]
  - Paraesthesia [None]
